FAERS Safety Report 9894785 (Version 2)
Quarter: 2014Q1

REPORT INFORMATION
  Report Type: Report from Study
  Country: US (occurrence: US)
  Receive Date: 20140213
  Receipt Date: 20140213
  Transmission Date: 20141002
  Serious: Yes (Death, Hospitalization)
  Sender: FDA-Public Use
  Company Number: US-ACTELION-A-US2013-87805

PATIENT
  Age: 67 Year
  Sex: Female

DRUGS (5)
  1. VELETRI [Suspect]
     Indication: PULMONARY ARTERIAL HYPERTENSION
     Dosage: 23 NG/KG, PER MIN
     Route: 042
     Dates: start: 20111215
  2. VELETRI [Suspect]
     Dosage: 29 NG/KG, PER MIN
     Route: 042
  3. TRACLEER [Suspect]
     Indication: PULMONARY ARTERIAL HYPERTENSION
     Dosage: UNK
     Route: 048
  4. COUMADIN [Concomitant]
  5. BUMEX [Concomitant]
     Dosage: 1 MG, UNK

REACTIONS (5)
  - Death [Fatal]
  - Ascites [Unknown]
  - Fluid retention [Unknown]
  - Local swelling [Unknown]
  - Paracentesis [Unknown]
